FAERS Safety Report 9178375 (Version 1)
Quarter: 2012Q4

REPORT INFORMATION
  Report Type: 
  Country: US (occurrence: US)
  Receive Date: 20121029
  Receipt Date: 20121029
  Transmission Date: 20130627
  Serious: Yes (Hospitalization)
  Sender: FDA-Public Use
  Company Number: US-FRI-1000039780

PATIENT
  Age: 69 Year
  Sex: Female

DRUGS (3)
  1. ARMOUR THYROID [Suspect]
     Indication: HYPOTHYROIDISM
     Dosage: 90 mg
     Route: 048
     Dates: start: 201110
  2. COZAAR [Concomitant]
     Indication: HYPERTENSION
  3. NORVASC [Concomitant]
     Indication: HYPERTENSION
     Dosage: 10 mg
     Route: 048

REACTIONS (4)
  - Cerebrovascular accident [Recovered/Resolved]
  - Atrial fibrillation [Recovering/Resolving]
  - Anxiety [Recovering/Resolving]
  - Palpitations [Recovering/Resolving]
